FAERS Safety Report 5366520-0 (Version None)
Quarter: 2007Q2

REPORT INFORMATION
  Report Type: 
  Country: None (occurrence: None)
  Receive Date: 20070622
  Receipt Date: 20070615
  Transmission Date: 20071010
  Serious: Yes (Hospitalization, Other)
  Sender: FDA-Public Use
  Company Number: US-PFIZER INC-2007049105

PATIENT
  Sex: Female
  Weight: 68 kg

DRUGS (8)
  1. LYRICA [Suspect]
     Indication: DIABETIC NEUROPATHY
  2. SITAGLIPTIN [Concomitant]
  3. TAMOXIFEN CITRATE [Concomitant]
  4. ZOCOR [Concomitant]
  5. LOPRESSOR [Concomitant]
  6. GLUCOPHAGE [Concomitant]
  7. PLAVIX [Concomitant]
  8. VYTORIN [Concomitant]

REACTIONS (11)
  - ABASIA [None]
  - ARTHRALGIA [None]
  - CEREBROVASCULAR ACCIDENT [None]
  - HALLUCINATION [None]
  - HYPERTENSION [None]
  - HYPOTENSION [None]
  - KNEE ARTHROPLASTY [None]
  - NERVOUSNESS [None]
  - PAIN IN EXTREMITY [None]
  - SYNCOPE [None]
  - WEIGHT DECREASED [None]
